FAERS Safety Report 6740613-5 (Version None)
Quarter: 2010Q2

REPORT INFORMATION
  Report Type: 
  Country: None (occurrence: None)
  Receive Date: 20100525
  Receipt Date: 20100517
  Transmission Date: 20101027
  Serious: Yes (Other)
  Sender: FDA-Public Use
  Company Number: CA-ROCHE-703804

PATIENT
  Age: 65 Year

DRUGS (1)
  1. BEVACIZUMAB [Suspect]
     Indication: MYOPIA
     Route: 031
     Dates: start: 20070724, end: 20070724

REACTIONS (1)
  - EYE INFLAMMATION [None]
